FAERS Safety Report 4303333-2 (Version None)
Quarter: 2004Q1

REPORT INFORMATION
  Report Type: 
  Country: None (occurrence: None)
  Receive Date: 20040223
  Receipt Date: 20040218
  Transmission Date: 20041129
  Serious: Yes (Death)
  Sender: FDA-Public Use
  Company Number: KII-2003-0004826

PATIENT
  Sex: Female

DRUGS (1)
  1. UNIPHYL [Suspect]
     Indication: CHRONIC OBSTRUCTIVE AIRWAYS DISEASE

REACTIONS (1)
  - CHRONIC OBSTRUCTIVE AIRWAYS DISEASE EXACERBATED [None]
